FAERS Safety Report 15935955 (Version 1)
Quarter: 2019Q1

REPORT INFORMATION
  Report Type: Spontaneous
  Country: FR (occurrence: FR)
  Receive Date: 20190208
  Receipt Date: 20190208
  Transmission Date: 20190417
  Serious: Yes (Hospitalization)
  Sender: FDA-Public Use
  Company Number: FR-TEVA-2019-FR-1008181

PATIENT
  Age: 13 Year
  Sex: Female

DRUGS (6)
  1. IBUPROFENE [Suspect]
     Active Substance: IBUPROFEN
     Indication: SUICIDE ATTEMPT
     Dosage: NOT INFORMED
     Route: 048
     Dates: start: 20181110, end: 20181110
  2. SPASFON (PHLOROGLUCINOL) [Suspect]
     Active Substance: PHLOROGLUCINOL
     Indication: SUICIDE ATTEMPT
     Dosage: NOT INFORMED
     Route: 048
     Dates: start: 20181110, end: 20181110
  3. HYDROXYZINE (CHLORHYDRATE D^) [Suspect]
     Active Substance: HYDROXYZINE HYDROCHLORIDE
     Indication: SUICIDE ATTEMPT
     Route: 048
     Dates: start: 20181110, end: 20181110
  4. DESLORATADINE. [Suspect]
     Active Substance: DESLORATADINE
     Indication: SUICIDE ATTEMPT
     Dosage: NOT INFORMED
     Route: 048
     Dates: start: 20181110, end: 20181110
  5. STRESAM [Suspect]
     Active Substance: ETIFOXINE
     Indication: SUICIDE ATTEMPT
     Route: 048
     Dates: start: 20181110, end: 20181110
  6. PARACETAMOL [Suspect]
     Active Substance: ACETAMINOPHEN
     Indication: SUICIDE ATTEMPT
     Dosage: NOT INFORMED
     Route: 048
     Dates: start: 20181110, end: 20181110

REACTIONS (3)
  - Suicide attempt [None]
  - Toxicity to various agents [Recovered/Resolved]
  - Altered state of consciousness [Recovered/Resolved]

NARRATIVE: CASE EVENT DATE: 20181110
